FAERS Safety Report 5302839-7 (Version None)
Quarter: 2007Q2

REPORT INFORMATION
  Report Type: 
  Country: None (occurrence: None)
  Receive Date: 20070417
  Receipt Date: 20070417
  Transmission Date: 20071010
  Serious: No
  Sender: FDA-Public Use
  Company Number: None

PATIENT
  Age: 36 Year
  Sex: Female
  Weight: 54.4316 kg

DRUGS (1)
  1. ZICAM [Suspect]
     Indication: NASOPHARYNGITIS
     Dosage: AS DIRECTED
     Dates: start: 20030201, end: 20061201

REACTIONS (3)
  - AGEUSIA [None]
  - ANOSMIA [None]
  - RHINALGIA [None]
